FAERS Safety Report 10623356 (Version 2)
Quarter: 2014Q4

REPORT INFORMATION
  Report Type: Spontaneous
  Country: US (occurrence: US)
  Receive Date: 20141203
  Receipt Date: 20141203
  Transmission Date: 20150529
  Serious: Yes (Hospitalization, Other)
  Sender: FDA-Public Use
  Company Number: US-UNITED THERAPEUTICS-UNT-2014-011156

PATIENT
  Age: 36 Year
  Sex: Female
  Weight: 75.74 kg

DRUGS (3)
  1. REMODULIN [Suspect]
     Active Substance: TREPROSTINIL
     Indication: PULMONARY ARTERIAL HYPERTENSION
     Dosage: 0.027 ?G/KG, CONTINUING
     Route: 041
     Dates: start: 20140315
  2. TRACLEER [Concomitant]
     Active Substance: BOSENTAN\BOSENTAN MONOHYDRATE
     Indication: PRODUCT USED FOR UNKNOWN INDICATION
  3. REMODULIN [Suspect]
     Active Substance: TREPROSTINIL
     Dosage: 0.027 ?G/KG, CONTINUING
     Route: 041
     Dates: start: 20140315

REACTIONS (11)
  - Respiratory disorder [Unknown]
  - Atrial fibrillation [Unknown]
  - Bone disorder [Unknown]
  - Cyanosis [Unknown]
  - Oedema [Unknown]
  - Syncope [Unknown]
  - Asthma [Unknown]
  - Dyspnoea exertional [Unknown]
  - Palpitations [Unknown]
  - Pulmonary arterial hypertension [Unknown]
  - Cough [Unknown]

NARRATIVE: CASE EVENT DATE: 2014
